FAERS Safety Report 6174571-1 (Version None)
Quarter: 2009Q2

REPORT INFORMATION
  Report Type: 
  Country: None (occurrence: None)
  Receive Date: 20090430
  Receipt Date: 20080808
  Transmission Date: 20091009
  Serious: No
  Sender: FDA-Public Use
  Company Number: US-ASTRAZENECA-2008UW15708

PATIENT
  Age: 76 Year
  Sex: Female
  Weight: 59 kg

DRUGS (1)
  1. NEXIUM [Suspect]
     Indication: GASTROOESOPHAGEAL REFLUX DISEASE
     Route: 048
     Dates: start: 20060101

REACTIONS (2)
  - LIVER FUNCTION TEST ABNORMAL [None]
  - RED BLOOD CELL SEDIMENTATION RATE ABNORMAL [None]
